FAERS Safety Report 4494264-6 (Version None)
Quarter: 2004Q4

REPORT INFORMATION
  Report Type: 
  Country: None (occurrence: None)
  Receive Date: 20041101
  Receipt Date: 20041014
  Transmission Date: 20050328
  Serious: Yes (Other)
  Sender: FDA-Public Use
  Company Number: 239837

PATIENT
  Age: 86 Year
  Sex: Male
  Weight: 79.8 kg

DRUGS (9)
  1. NOVOSEVEN [Suspect]
     Indication: SUBDURAL HAEMATOMA
     Dosage: IN TOTAL 2.4 MG, INTRAVENOUS
     Route: 042
     Dates: start: 20040915
  2. COUMADIN [Concomitant]
  3. LOPRESSOR [Concomitant]
  4. LASIX [Concomitant]
  5. PEPCID [Concomitant]
  6. CLONIDINE HCL [Concomitant]
  7. TPN (TYROSINE, PYRIDOXINE HYDROCHLORIDE, NICOTINAMIDE) [Concomitant]
  8. DILANTIN [Concomitant]
  9. PLASMA [Concomitant]

REACTIONS (3)
  - CARDIAC ARREST [None]
  - COMA [None]
  - PULMONARY EMBOLISM [None]
